FAERS Safety Report 14133548 (Version 1)
Quarter: 2017Q4

REPORT INFORMATION
  Report Type: Spontaneous
  Country: US (occurrence: US)
  Receive Date: 20171026
  Receipt Date: 20171026
  Transmission Date: 20180321
  Serious: No
  Sender: FDA-Public Use
  Company Number: US-MYLANLABS-2017M1067520

PATIENT
  Sex: Female
  Weight: 61 kg

DRUGS (1)
  1. ECONTRA EZ [Suspect]
     Active Substance: LEVONORGESTREL
     Indication: CONTRACEPTION
     Dosage: 1 DF, ONCE
     Route: 048
     Dates: start: 20171012, end: 20171012

REACTIONS (3)
  - Vaginal discharge [Not Recovered/Not Resolved]
  - Nipple pain [Not Recovered/Not Resolved]
  - Feeling abnormal [Not Recovered/Not Resolved]
